FAERS Safety Report 5420891-5 (Version None)
Quarter: 2007Q3

REPORT INFORMATION
  Report Type: 
  Country: None (occurrence: None)
  Receive Date: 20070821
  Receipt Date: 20070810
  Transmission Date: 20080115
  Serious: Yes (Hospitalization)
  Sender: FDA-Public Use
  Company Number: FR-ROCHE-511418

PATIENT
  Age: 41 Year
  Sex: Male
  Weight: 64 kg

DRUGS (8)
  1. ENFUVIRTIDE [Suspect]
     Route: 058
     Dates: start: 20070731, end: 20070810
  2. LOPINAVIR AND RITONAVIR [Suspect]
     Dosage: DOSING AMOUNT REPORTED AS 4.
     Route: 065
     Dates: start: 20070730, end: 20070810
  3. EMTRICITABINE/TENOFOVIR [Suspect]
     Route: 048
     Dates: start: 20070730, end: 20070810
  4. BACTRIM [Concomitant]
     Dates: start: 20070722
  5. LOVENOX [Concomitant]
     Dates: start: 20070806
  6. VANCOMYCIN [Concomitant]
     Dosage: TOTAL DAILY DOSE REPORTED AS 2600.
     Dates: start: 20070725, end: 20070808
  7. NEXIUM [Concomitant]
     Dates: start: 20070723
  8. TRIFLUCAN [Concomitant]
     Dates: start: 20070720

REACTIONS (2)
  - CYTOLYTIC HEPATITIS [None]
  - SEPSIS [None]
